FAERS Safety Report 9678266 (Version 2)
Quarter: 2014Q1

REPORT INFORMATION
  Report Type: Spontaneous
  Country: GB (occurrence: GB)
  Receive Date: 20131108
  Receipt Date: 20140131
  Transmission Date: 20141002
  Serious: Yes (Hospitalization, Disabling, Other)
  Sender: FDA-Public Use
  Company Number: GB-PFIZER INC-2013315925

PATIENT
  Age: 75 Year
  Sex: Female
  Weight: 60 kg

DRUGS (4)
  1. TAZOCIN [Suspect]
     Indication: PYREXIA
     Dosage: 4.5 G, 3X/DAY
     Route: 042
     Dates: start: 20131025, end: 20131026
  2. LANSOPRAZOLE [Concomitant]
     Dosage: UNK
  3. CO-AMOXICLAV [Concomitant]
     Dosage: UNK
     Route: 042
     Dates: end: 2013
  4. CO-AMOXICLAV [Concomitant]
     Dosage: 1.2 G, 3X/DAY
     Route: 048
     Dates: end: 2013

REACTIONS (6)
  - Clostridium difficile colitis [Not Recovered/Not Resolved]
  - Pseudomembranous colitis [Unknown]
  - Diarrhoea [Unknown]
  - Condition aggravated [Unknown]
  - Bacteraemia [Unknown]
  - Faeces discoloured [Unknown]
